FAERS Safety Report 5447720-8 (Version None)
Quarter: 2007Q3

REPORT INFORMATION
  Report Type: 
  Country: None (occurrence: None)
  Receive Date: 20070910
  Receipt Date: 20070830
  Transmission Date: 20080115
  Serious: No
  Sender: FDA-Public Use
  Company Number: CZ-BAXTER-2007BH006837

PATIENT
  Age: 3 Year
  Sex: Female
  Weight: 16 kg

DRUGS (5)
  1. IMMUNE GLOBULIN INTRAVENOUS (HUMAN) [Suspect]
     Indication: KAWASAKI'S DISEASE
     Dosage: DOSE UNIT:
     Route: 042
     Dates: start: 20070727, end: 20070727
  2. DALACIN [Concomitant]
  3. AXETIN [Concomitant]
     Indication: OSTEOMYELITIS
  4. ANOPYRIN [Concomitant]
  5. BRUFEN ^ABBOTT^ [Concomitant]

REACTIONS (5)
  - ANXIETY [None]
  - CHILLS [None]
  - HYPOTENSION [None]
  - POOR PERIPHERAL CIRCULATION [None]
  - PYREXIA [None]
